FAERS Safety Report 18704174 (Version 2)
Quarter: 2021Q1

REPORT INFORMATION
  Report Type: Other
  Country: KR (occurrence: KR)
  Receive Date: 20210106
  Receipt Date: 20210212
  Transmission Date: 20210419
  Serious: Yes (Other)
  Sender: FDA-Public Use
  Company Number: KR-ROCHE-2743855

PATIENT
  Age: 79 Year
  Sex: Female

DRUGS (1)
  1. RANIBIZUMAB. [Suspect]
     Active Substance: RANIBIZUMAB
     Indication: NEOVASCULARISATION
     Dosage: FOUR MONTHLY INJECTIONS
     Route: 065

REACTIONS (1)
  - Subretinal fluid [Not Recovered/Not Resolved]
